FAERS Safety Report 15025247 (Version 1)
Quarter: 2018Q2

REPORT INFORMATION
  Report Type: Spontaneous
  Country: US (occurrence: US)
  Receive Date: 20180618
  Receipt Date: 20180618
  Transmission Date: 20180711
  Serious: Yes (Hospitalization)
  Sender: FDA-Public Use
  Company Number: US-ACTELION-A-US2018-173612

PATIENT
  Age: 58 Year
  Sex: Female

DRUGS (1)
  1. VELETRI [Suspect]
     Active Substance: EPOPROSTENOL
     Indication: PULMONARY ARTERIAL HYPERTENSION
     Dosage: 18.04 NG/KG, PER MIN
     Route: 042

REACTIONS (4)
  - Respiratory failure [Unknown]
  - Right ventricular failure [Unknown]
  - Septic shock [Unknown]
  - Lactic acidosis [Unknown]
